FAERS Safety Report 8930449 (Version 2)
Quarter: 2013Q1

REPORT INFORMATION
  Report Type: Report from Study
  Country: JP (occurrence: JP)
  Receive Date: 20121128
  Receipt Date: 20130311
  Transmission Date: 20140127
  Serious: Yes (Hospitalization)
  Sender: FDA-Public Use
  Company Number: JP-ABBOTT-12P-087-0933553-00

PATIENT
  Age: 60 Year
  Sex: Female
  Weight: 54.5 kg

DRUGS (21)
  1. HUMIRA [Suspect]
     Indication: RHEUMATOID ARTHRITIS
     Route: 058
     Dates: start: 20111110, end: 20120301
  2. HUMIRA [Suspect]
     Dates: start: 20120331
  3. OCRELIZUMAB [Suspect]
     Indication: RHEUMATOID ARTHRITIS
     Dates: start: 20090116, end: 20090715
  4. METHOTREXATE [Suspect]
     Indication: RHEUMATOID ARTHRITIS
     Dosage: 8 MG/WEEK
     Route: 048
     Dates: end: 20120210
  5. METHOTREXATE [Suspect]
     Dosage: 4 MG/WEEK
     Dates: start: 20120413, end: 20120426
  6. METHOTREXATE [Suspect]
     Dosage: 4 MG/WEEK
     Dates: start: 20120510, end: 20120524
  7. METHOTREXATE [Suspect]
     Dosage: 8 MG/WEEK
     Dates: start: 20120531
  8. SAWACILLIN [Suspect]
     Indication: PYREXIA
     Route: 048
     Dates: start: 20120312, end: 20120319
  9. PREDNISOLONE [Suspect]
     Indication: RHEUMATOID ARTHRITIS
     Route: 048
     Dates: end: 20120318
  10. PREDNISOLONE [Suspect]
     Indication: DRUG HYPERSENSITIVITY
     Dates: start: 20120319, end: 20120321
  11. PREDNISOLONE [Suspect]
     Dates: start: 20120322, end: 20120328
  12. PREDNISOLONE [Suspect]
     Dates: start: 20120329, end: 20120404
  13. PREDNISOLONE [Suspect]
     Dates: start: 20120405, end: 20120412
  14. PREDNISOLONE [Suspect]
     Dates: start: 20120413, end: 20120620
  15. PREDNISOLONE [Suspect]
     Dates: start: 20120621, end: 20130125
  16. PREDNISOLONE [Suspect]
     Dates: start: 20130126
  17. LANSOPRAZOLE [Concomitant]
     Indication: GASTRITIS PROPHYLAXIS
     Route: 048
  18. LOXOPROFEN SODIUM HYDRATE [Concomitant]
     Indication: RHEUMATOID ARTHRITIS
     Route: 048
  19. ALFACALCIDOL [Concomitant]
     Indication: OSTEOPOROSIS
     Route: 048
     Dates: start: 20070324
  20. FOLIC ACID [Concomitant]
     Indication: PROPHYLAXIS
     Route: 048
  21. FOLIC ACID [Concomitant]
     Indication: ADVERSE DRUG REACTION

REACTIONS (5)
  - Pyelonephritis acute [Recovered/Resolved]
  - Dental caries [Recovered/Resolved]
  - Toothache [Recovered/Resolved]
  - Pyrexia [Recovered/Resolved]
  - Drug hypersensitivity [Recovered/Resolved]
